FAERS Safety Report 4602625-7 (Version None)
Quarter: 2005Q1

REPORT INFORMATION
  Report Type: 
  Country: None (occurrence: None)
  Receive Date: 20050308
  Receipt Date: 20050302
  Transmission Date: 20050727
  Serious: Yes (Death, Hospitalization)
  Sender: FDA-Public Use
  Company Number: 05-02-0168

PATIENT
  Age: 58 Year
  Sex: Female
  Weight: 79.3795 kg

DRUGS (5)
  1. CLOZAPINE [Suspect]
     Indication: SCHIZOPHRENIA
     Dosage: 300 MG HS ORAL
     Route: 048
     Dates: start: 20011211, end: 20050128
  2. CLOZAPINE [Suspect]
     Indication: SCHIZOPHRENIA, PARANOID TYPE
     Dosage: 300 MG HS ORAL
     Route: 048
     Dates: start: 20011211, end: 20050128
  3. RISPERDAL [Concomitant]
  4. DEPAKOTE [Concomitant]
  5. CELEXA [Concomitant]

REACTIONS (3)
  - BACTERIAL INFECTION [None]
  - PNEUMONIA [None]
  - RESPIRATORY FAILURE [None]
